FAERS Safety Report 5115163-2 (Version None)
Quarter: 2006Q3

REPORT INFORMATION
  Report Type: 
  Country: None (occurrence: None)
  Receive Date: 20060925
  Receipt Date: 20060925
  Transmission Date: 20061208
  Serious: Yes (Hospitalization)
  Sender: FDA-Public Use
  Company Number: None

PATIENT
  Sex: Male

DRUGS (1)
  1. GM CSF [Suspect]
     Indication: PROSTATE CANCER
     Dosage: 75 MG/M2 DAYS 1-14 OF 28 DAY CYCLE
     Dates: start: 20060913

REACTIONS (1)
  - DYSPNOEA [None]
